FAERS Safety Report 9817794 (Version 1)
Quarter: 2013Q4

REPORT INFORMATION
  Report Type: Spontaneous
  Country: US (occurrence: None)
  Receive Date: 20131224
  Receipt Date: 20131224
  Transmission Date: 20140711
  Serious: No
  Sender: FDA-Public Use
  Company Number: PHEH2013US020062

PATIENT
  Age: 44 Year
  Sex: Female

DRUGS (2)
  1. GILENYA (FINGOLIMOD) [Suspect]
  2. AMPYRA [Suspect]

REACTIONS (2)
  - Visual acuity reduced [None]
  - Vomiting [None]
